FAERS Safety Report 17801499 (Version 1)
Quarter: 2020Q2

REPORT INFORMATION
  Report Type: Spontaneous
  Country: US (occurrence: US)
  Receive Date: 20200518
  Receipt Date: 20200518
  Transmission Date: 20200714
  Serious: No
  Sender: FDA-Public Use
  Company Number: None

PATIENT
  Age: 82 Year
  Sex: Male

DRUGS (1)
  1. ALLOPURINOL (ALLOPURINOL 100MG TAB) [Suspect]
     Active Substance: ALLOPURINOL
     Dates: start: 20190117, end: 20191115

REACTIONS (1)
  - Lichenoid keratosis [None]

NARRATIVE: CASE EVENT DATE: 20191115
